FAERS Safety Report 11340873 (Version 1)
Quarter: 2015Q3

REPORT INFORMATION
  Report Type: Spontaneous
  Country: US (occurrence: US)
  Receive Date: 20150805
  Receipt Date: 20150805
  Transmission Date: 20151125
  Serious: No
  Sender: FDA-Public Use
  Company Number: US-PFIZER INC-2015261044

PATIENT
  Age: 70 Year
  Sex: Male
  Weight: 106 kg

DRUGS (4)
  1. VIAGRA [Suspect]
     Active Substance: SILDENAFIL CITRATE
     Indication: ERECTILE DYSFUNCTION
     Dosage: 100 MG, AS NEEDED
     Route: 048
     Dates: start: 201506
  2. LISINOPRIL. [Concomitant]
     Active Substance: LISINOPRIL
     Indication: BLOOD PRESSURE MEASUREMENT
     Dosage: 10 MG, DAILY
     Route: 048
     Dates: start: 201507
  3. LOSARTAN. [Concomitant]
     Active Substance: LOSARTAN
     Indication: BLOOD PRESSURE MEASUREMENT
     Dosage: 50 MG, DAILY
     Route: 048
     Dates: end: 201507
  4. WARFARIN [Concomitant]
     Active Substance: WARFARIN
     Dosage: 85 MG WEEKLY (15 MG, ON SUN, TUES AND THURS;10 MG, ON MON, WED, FRI, AND SAT)
     Route: 048

REACTIONS (4)
  - Anorgasmia [Unknown]
  - Drug ineffective [Unknown]
  - Drug effect incomplete [Not Recovered/Not Resolved]
  - Ejaculation disorder [Not Recovered/Not Resolved]
